FAERS Safety Report 9928276 (Version 1)
Quarter: 2014Q1

REPORT INFORMATION
  Report Type: Spontaneous
  Country: US (occurrence: None)
  Receive Date: 20140226
  Receipt Date: 20140226
  Transmission Date: 20141002
  Serious: No
  Sender: FDA-Public Use
  Company Number: None

PATIENT
  Age: 65 Year
  Sex: Female
  Weight: 90.72 kg

DRUGS (1)
  1. PRO AIR [Suspect]
     Dosage: 1-2 PUFFS AS NEEDED AS NEEDED TAKEN BY MOUTH
     Route: 055
     Dates: start: 20140224, end: 20140224

REACTIONS (1)
  - Vomiting [None]
